FAERS Safety Report 7068420-7 (Version None)
Quarter: 2010Q4

REPORT INFORMATION
  Report Type: 
  Country: None (occurrence: None)
  Receive Date: 20101028
  Receipt Date: 20101022
  Transmission Date: 20110411
  Serious: Yes (Hospitalization)
  Sender: FDA-Public Use
  Company Number: B0680783A

PATIENT
  Sex: Female

DRUGS (3)
  1. ONDANSETRON HCL [Suspect]
     Indication: PREMEDICATION
     Dosage: 8MG PER DAY
     Route: 042
     Dates: start: 20101005, end: 20101005
  2. METHYLPREDNISOLONE [Concomitant]
     Indication: PREMEDICATION
     Route: 042
     Dates: start: 20101005, end: 20101005
  3. TARCEVA [Concomitant]
     Indication: CATARACT
     Route: 065

REACTIONS (6)
  - BACK PAIN [None]
  - BLOOD PRESSURE INCREASED [None]
  - ERYTHEMA [None]
  - HEART RATE INCREASED [None]
  - PAINFUL RESPIRATION [None]
  - SENSE OF OPPRESSION [None]
